FAERS Safety Report 7669617-5 (Version None)
Quarter: 2011Q3

REPORT INFORMATION
  Report Type: 
  Country: None (occurrence: None)
  Receive Date: 20110803
  Receipt Date: 20110719
  Transmission Date: 20111222
  Serious: Yes (Hospitalization, Other)
  Sender: FDA-Public Use
  Company Number: 2011MA009069

PATIENT
  Age: 62 Year
  Sex: Male

DRUGS (2)
  1. VINORELBINE [Suspect]
     Indication: SMALL CELL LUNG CANCER STAGE UNSPECIFIED
     Dosage: 40 MG, 1X, IV
     Route: 042
  2. SODIUM CHLORIDE 0.9% [Suspect]
     Indication: SMALL CELL LUNG CANCER STAGE UNSPECIFIED
     Dosage: 100 ML, 1X, IV
     Route: 042

REACTIONS (3)
  - BLOOD PRESSURE INCREASED [None]
  - BLOOD PRESSURE IMMEASURABLE [None]
  - ANAPHYLACTIC REACTION [None]
